FAERS Safety Report 26060116 (Version 1)
Quarter: 2025Q4

REPORT INFORMATION
  Report Type: Spontaneous
  Country: US (occurrence: US)
  Receive Date: 20251118
  Receipt Date: 20251118
  Transmission Date: 20260117
  Serious: No
  Sender: PFIZER
  Company Number: US-PFIZER INC-202500223379

PATIENT
  Age: 86 Year
  Sex: Female

DRUGS (1)
  1. ELREXFIO [Suspect]
     Active Substance: ELRANATAMAB-BCMM
     Dosage: UNK, EVERY OTHER WEEK

REACTIONS (3)
  - Asthenia [Unknown]
  - Balance disorder [Unknown]
  - Off label use [Unknown]
